FAERS Safety Report 18435527 (Version 6)
Quarter: 2020Q4

REPORT INFORMATION
  Report Type: Report from Study
  Country: None (occurrence: BE)
  Receive Date: 20201027
  Receipt Date: 20201127
  Transmission Date: 20210114
  Serious: Yes (Death, Hospitalization, Other)
  Sender: FDA-Public Use
  Company Number: BE-ABBVIE-20K-013-3625382-00

PATIENT
  Age: 88 Year
  Sex: Male
  Weight: 80 kg

DRUGS (3)
  1. DUODOPA [Suspect]
     Active Substance: CARBIDOPA\LEVODOPA
     Indication: PARKINSON^S DISEASE
     Dosage: UNKNOWN DOSAGES
     Route: 050
     Dates: start: 20161031, end: 20200702
  2. DUODOPA [Suspect]
     Active Substance: CARBIDOPA\LEVODOPA
     Dosage: MD= 3.5 ML, CD= 4ML/HR DURING 16HRS, ED= 3.5 ML, ND= 3.2 ML/HR DURING 8HRS
     Route: 050
     Dates: start: 20201112
  3. DUODOPA [Suspect]
     Active Substance: CARBIDOPA\LEVODOPA
     Dosage: MD= 3.5 ML, CD= 4.2 ML/HR DURING 16HRS, ED= 3.5 ML, ND= 3.6 ML/HR DURING 8HRS
     Route: 050
     Dates: start: 20200702, end: 20201112

REACTIONS (6)
  - Weight decreased [Unknown]
  - General physical health deterioration [Unknown]
  - Hallucination [Unknown]
  - Death [Fatal]
  - COVID-19 [Unknown]
  - Pneumonia aspiration [Unknown]

NARRATIVE: CASE EVENT DATE: 20201124
